FAERS Safety Report 11717005 (Version 1)
Quarter: 2015Q4

REPORT INFORMATION
  Report Type: Spontaneous
  Country: US (occurrence: US)
  Receive Date: 20151109
  Receipt Date: 20151109
  Transmission Date: 20160304
  Serious: Yes (Hospitalization)
  Sender: FDA-Public Use
  Company Number: US-BAUSCH-BL-2015-026242

PATIENT
  Sex: Male

DRUGS (2)
  1. SIMVASTATIN. [Concomitant]
     Active Substance: SIMVASTATIN
     Indication: BLOOD CHOLESTEROL INCREASED
     Route: 048
     Dates: start: 2012
  2. VASOTEC [Suspect]
     Active Substance: ENALAPRIL MALEATE
     Indication: HYPERTENSION
     Route: 048
     Dates: start: 2012

REACTIONS (1)
  - Nephrolithiasis [Not Recovered/Not Resolved]

NARRATIVE: CASE EVENT DATE: 201301
